FAERS Safety Report 8559545-5 (Version None)
Quarter: 2012Q3

REPORT INFORMATION
  Report Type: 
  Country: None (occurrence: None)
  Receive Date: 20120802
  Receipt Date: 20120723
  Transmission Date: 20120928
  Serious: Yes (Hospitalization)
  Sender: FDA-Public Use
  Company Number: US-BAYER-2012-022059

PATIENT
  Age: 52 Year
  Sex: Female
  Weight: 63.492 kg

DRUGS (5)
  1. TERBINAFINE HCL [Concomitant]
     Dosage: 250 MG, UNK
     Route: 048
     Dates: start: 20090225
  2. NEXIUM [Concomitant]
     Dosage: 40 MG, UNK
     Route: 048
  3. YAZ [Suspect]
     Dosage: UNK
     Dates: start: 20070801
  4. SUMATRIPTAN [Concomitant]
     Indication: HEADACHE
     Dosage: 100 MG, PRN
     Route: 048
  5. YASMIN [Suspect]
     Dosage: UNK
     Dates: start: 20070801

REACTIONS (4)
  - CEREBRAL THROMBOSIS [None]
  - FEAR OF DISEASE [None]
  - PAIN [None]
  - TRANSVERSE SINUS THROMBOSIS [None]
